FAERS Safety Report 8356502-9 (Version None)
Quarter: 2012Q2

REPORT INFORMATION
  Report Type: 
  Country: None (occurrence: None)
  Receive Date: 20120514
  Receipt Date: 20120511
  Transmission Date: 20120825
  Serious: No
  Sender: FDA-Public Use
  Company Number: US-PFIZER INC-2012115741

PATIENT
  Sex: Female
  Weight: 76.644 kg

DRUGS (6)
  1. LYRICA [Suspect]
     Indication: HYPOAESTHESIA
     Dosage: 300 MG, DAILY
     Route: 048
     Dates: start: 20120201
  2. VITAMIN D [Concomitant]
     Dosage: 5000 IU, DAILY
  3. VITAMIN B-12 [Concomitant]
     Dosage: UNK, DAILY
  4. LITHIUM [Concomitant]
     Indication: POSTPARTUM DEPRESSION
     Dosage: 300 MG, 2X/DAY
  5. LYRICA [Suspect]
     Dosage: 75 MG, 2X/DAY
     Route: 048
     Dates: start: 20120101
  6. LISINOPRIL [Concomitant]
     Indication: BLOOD PRESSURE ABNORMAL
     Dosage: 10 MG, 2X/DAY

REACTIONS (2)
  - SKIN DISCOLOURATION [None]
  - WEIGHT INCREASED [None]
